FAERS Safety Report 13931430 (Version 2)
Quarter: 2017Q3

REPORT INFORMATION
  Report Type: Report from Study
  Country: JP (occurrence: JP)
  Receive Date: 20170903
  Receipt Date: 20170911
  Transmission Date: 20171127
  Serious: Yes (Hospitalization)
  Sender: FDA-Public Use
  Company Number: JP-ROCHE-1987163

PATIENT
  Age: 68 Year
  Sex: Male

DRUGS (3)
  1. RANIBIZUMAB. [Suspect]
     Active Substance: RANIBIZUMAB
     Route: 031
  2. RANIBIZUMAB. [Suspect]
     Active Substance: RANIBIZUMAB
     Indication: RETINAL VEIN OCCLUSION
     Route: 031
     Dates: start: 20150803
  3. GATIFLO [Concomitant]
     Active Substance: GATIFLOXACIN
     Indication: ANTIBIOTIC PROPHYLAXIS
     Dosage: BEFORE AND AFTER LUCENTIS INJECTION
     Route: 047

REACTIONS (1)
  - Cerebral infarction [Recovered/Resolved]

NARRATIVE: CASE EVENT DATE: 20161019
